FAERS Safety Report 5839071-4 (Version None)
Quarter: 2008Q3

REPORT INFORMATION
  Report Type: 
  Country: None (occurrence: None)
  Receive Date: 20080808
  Receipt Date: 20080728
  Transmission Date: 20090109
  Serious: Yes (Hospitalization, Other)
  Sender: FDA-Public Use
  Company Number: US-PFIZER INC-2006055185

PATIENT
  Sex: Male
  Weight: 81.6 kg

DRUGS (6)
  1. LIPITOR [Suspect]
     Indication: BLOOD CHOLESTEROL INCREASED
  2. ANTIBIOTICS [Suspect]
  3. ACETYLSALICYLIC ACID SRT [Concomitant]
     Route: 065
  4. CARDURA [Concomitant]
     Route: 065
  5. PLAVIX [Concomitant]
  6. TOPROL-XL [Concomitant]

REACTIONS (8)
  - BALANCE DISORDER [None]
  - CEREBROVASCULAR ACCIDENT [None]
  - CORONARY ARTERY BYPASS [None]
  - DIZZINESS [None]
  - DRUG INTERACTION [None]
  - LIVER FUNCTION TEST ABNORMAL [None]
  - PHARMACEUTICAL PRODUCT COMPLAINT [None]
  - WRONG TECHNIQUE IN DRUG USAGE PROCESS [None]
